FAERS Safety Report 18643431 (Version 1)
Quarter: 2020Q4

REPORT INFORMATION
  Report Type: Spontaneous
  Country: US (occurrence: US)
  Receive Date: 20201221
  Receipt Date: 20201221
  Transmission Date: 20210114
  Serious: No
  Sender: FDA-Public Use
  Company Number: US-RECORDATI RARE DISEASES-2103255

PATIENT
  Age: 41 Year
  Sex: Female

DRUGS (1)
  1. SIGNIFOR LAR [Suspect]
     Active Substance: PASIREOTIDE PAMOATE
     Indication: ACROMEGALY
     Dates: start: 20200821

REACTIONS (4)
  - Abdominal discomfort [Recovering/Resolving]
  - Diarrhoea [Unknown]
  - Blood glucose increased [Unknown]
  - Abdominal pain upper [Unknown]

NARRATIVE: CASE EVENT DATE: 2020
